FAERS Safety Report 14951472 (Version 1)
Quarter: 2018Q2

REPORT INFORMATION
  Report Type: Spontaneous
  Country: US (occurrence: US)
  Receive Date: 20180509
  Receipt Date: 20180509
  Transmission Date: 20180711
  Serious: No
  Sender: FDA-Public Use
  Company Number: None

PATIENT
  Age: 65 Year
  Sex: Female

DRUGS (1)
  1. IBRANCE [Suspect]
     Active Substance: PALBOCICLIB
     Indication: BREAST CANCER FEMALE
     Dosage: FREAUENCV?DAJLY FOR 2 1 DAYS,?   OFF 7 DAYS                  ?
     Route: 048
     Dates: start: 20180409

REACTIONS (2)
  - Alopecia [None]
  - Constipation [None]

NARRATIVE: CASE EVENT DATE: 20180415
